FAERS Safety Report 6337345-4 (Version None)
Quarter: 2009Q3

REPORT INFORMATION
  Report Type: 
  Country: None (occurrence: None)
  Receive Date: 20090901
  Receipt Date: 20090901
  Transmission Date: 20100115
  Serious: Yes (Other)
  Sender: FDA-Public Use
  Company Number: None

PATIENT
  Sex: Female
  Weight: 72.5755 kg

DRUGS (1)
  1. LIALDA [Suspect]
     Indication: LARGE INTESTINAL ULCER
     Dosage: 4 - 1.2 GM TABS AM - DAILY ORAL
     Route: 048
     Dates: start: 20081201, end: 20090710

REACTIONS (3)
  - ANAEMIA [None]
  - ARTHRALGIA [None]
  - BONE MARROW DISORDER [None]
